FAERS Safety Report 15983323 (Version 1)
Quarter: 2019Q1

REPORT INFORMATION
  Report Type: Spontaneous
  Country: US (occurrence: US)
  Receive Date: 20190125
  Receipt Date: 20190125
  Transmission Date: 20190418
  Serious: No
  Sender: FDA-Public Use
  Company Number: None

PATIENT

DRUGS (1)
  1. GLATIRAMER [Suspect]
     Active Substance: GLATIRAMER

REACTIONS (5)
  - Urticaria [None]
  - Rash [None]
  - Drug hypersensitivity [None]
  - Therapy cessation [None]
  - Erythema [None]
